FAERS Safety Report 25189545 (Version 1)
Quarter: 2025Q2

REPORT INFORMATION
  Report Type: Spontaneous
  Country: US (occurrence: US)
  Receive Date: 20250411
  Receipt Date: 20250411
  Transmission Date: 20250717
  Serious: Yes (Death, Other)
  Sender: AMGEN
  Company Number: US-AMGEN-USASP2025068259

PATIENT

DRUGS (8)
  1. CARFILZOMIB [Suspect]
     Active Substance: CARFILZOMIB
     Indication: Plasma cell myeloma refractory
     Route: 065
  2. DARATUMUMAB [Suspect]
     Active Substance: DARATUMUMAB
     Indication: Plasma cell myeloma refractory
     Route: 065
  3. CYTOXAN [Suspect]
     Active Substance: CYCLOPHOSPHAMIDE
     Indication: Plasma cell myeloma refractory
     Route: 065
  4. DEXAMETHASONE [Suspect]
     Active Substance: DEXAMETHASONE
     Indication: Plasma cell myeloma refractory
     Route: 065
  5. BORTEZOMIB [Suspect]
     Active Substance: BORTEZOMIB
     Indication: Plasma cell myeloma refractory
     Route: 065
  6. BENDAMUSTINE [Suspect]
     Active Substance: BENDAMUSTINE
     Indication: Plasma cell myeloma refractory
     Route: 065
  7. CYTARABINE [Concomitant]
     Active Substance: CYTARABINE
     Indication: Plasma cell myeloma refractory
     Route: 065
  8. POMALIDOMIDE [Concomitant]
     Active Substance: POMALIDOMIDE
     Indication: Plasma cell myeloma refractory
     Route: 065

REACTIONS (8)
  - Death [Fatal]
  - Plasma cell myeloma [Unknown]
  - Plasma cell myeloma recurrent [Unknown]
  - Sepsis [Unknown]
  - Off label use [Unknown]
  - Fungal infection [Unknown]
  - Cytomegalovirus infection [Unknown]
  - Therapy partial responder [Unknown]
